FAERS Safety Report 8246297-1 (Version None)
Quarter: 2012Q1

REPORT INFORMATION
  Report Type: 
  Country: None (occurrence: None)
  Receive Date: 20120329
  Receipt Date: 20120329
  Transmission Date: 20120608
  Serious: Yes (Life-Threatening, Hospitalization)
  Sender: FDA-Public Use
  Company Number: None

PATIENT
  Sex: Female
  Weight: 102.5129 kg

DRUGS (11)
  1. ACIPHEX [Concomitant]
  2. VIT C [Concomitant]
  3. HYDROCODONE BITARTRATE AND ACETAMINOPHEN [Concomitant]
  4. RECLAST [Suspect]
     Indication: OSTEOPOROSIS
     Dosage: 5MG/100ML ONCE ANNUALLY IV
     Route: 042
     Dates: start: 20100501
  5. RECLAST [Suspect]
     Indication: OSTEOPOROSIS
     Dosage: 5MG/100ML ONCE ANNUALLY IV
     Route: 042
     Dates: start: 20110603
  6. VIT D3 [Concomitant]
  7. VITAMIN B-12 [Concomitant]
  8. PROZAC [Concomitant]
  9. LEVOTHYROXINE SODIUM [Concomitant]
  10. LYRICA [Concomitant]
  11. AMBIEN [Concomitant]

REACTIONS (2)
  - FALL [None]
  - SUBDURAL HAEMATOMA [None]
